FAERS Safety Report 7928983 (Version 4)
Quarter: 2015Q4

REPORT INFORMATION
  Report Type: Report from Study
  Country: HR (occurrence: HR)
  Receive Date: 20110503
  Receipt Date: 20151030
  Transmission Date: 20160305
  Serious: Yes (Hospitalization, Disabling, Other)
  Sender: FDA-Public Use
  Company Number: HR-ELI_LILLY_AND_COMPANY-HR201104004401

PATIENT
  Age: 75 Year
  Sex: Female
  Weight: 65 kg

DRUGS (4)
  1. TERIPARATIDE [Suspect]
     Active Substance: TERIPARATIDE
     Indication: OSTEOPOROSIS
     Dosage: 20 UG, QD
     Route: 058
     Dates: start: 20101201, end: 20110419
  2. CALCIUM 600 + D [Concomitant]
     Active Substance: CALCIUM\VITAMIN D
     Indication: OSTEOPOROSIS
     Dosage: 600 MG, UNK
     Dates: start: 2001
  3. AMLODIPINE W/HYDROCHLOROTHIAZIDE [Concomitant]
     Indication: OEDEMA PERIPHERAL
     Dosage: UNK
     Dates: start: 2007
  4. VITAMIN D [Concomitant]
     Active Substance: CHOLECALCIFEROL
     Indication: OSTEOPOROSIS
     Dosage: 800 IU, UNK
     Dates: start: 2001

REACTIONS (2)
  - Basal cell carcinoma [Recovered/Resolved with Sequelae]
  - Deep vein thrombosis [Recovering/Resolving]

NARRATIVE: CASE EVENT DATE: 201101
